FAERS Safety Report 5204195-1 (Version None)
Quarter: 2007Q1

REPORT INFORMATION
  Report Type: 
  Country: None (occurrence: None)
  Receive Date: 20070110
  Receipt Date: 20060105
  Transmission Date: 20070707
  Serious: No
  Sender: FDA-Public Use
  Company Number: US-BRISTOL-MYERS SQUIBB COMPANY-13237995

PATIENT
  Age: 51 Year
  Sex: Male

DRUGS (2)
  1. ABILIFY [Suspect]
     Indication: DEPRESSION
     Dosage: DOSAGE: 10 MG OR 15 MG
     Route: 048
  2. WELLBUTRIN [Concomitant]

REACTIONS (1)
  - BLOOD GLUCOSE INCREASED [None]
